FAERS Safety Report 10017240 (Version 1)
Quarter: 2014Q1

REPORT INFORMATION
  Report Type: Spontaneous
  Country: US (occurrence: US)
  Receive Date: 20140318
  Receipt Date: 20140318
  Transmission Date: 20141002
  Serious: Yes (Other)
  Sender: FDA-Public Use
  Company Number: US-SA-2014SA032938

PATIENT
  Sex: 0

DRUGS (2)
  1. HECTOROL [Suspect]
     Indication: PRODUCT USED FOR UNKNOWN INDICATION
     Route: 065
  2. NORMAL SALINE [Concomitant]

REACTIONS (3)
  - Hypersensitivity [Unknown]
  - Unresponsive to stimuli [Recovered/Resolved]
  - Foaming at mouth [Unknown]
